FAERS Safety Report 9337021 (Version 2)
Quarter: 2013Q4

REPORT INFORMATION
  Report Type: Spontaneous
  Country: US (occurrence: US)
  Receive Date: 20130607
  Receipt Date: 20131121
  Transmission Date: 20140711
  Serious: Yes (Hospitalization)
  Sender: FDA-Public Use
  Company Number: US-B.I. PHARMACEUTICALS,INC./RIDGEFIELD-2013-BI-15938BP

PATIENT
  Sex: Female
  Weight: 110.68 kg

DRUGS (16)
  1. PRADAXA [Suspect]
     Indication: ANTICOAGULANT THERAPY
     Dosage: 300 MG
     Route: 048
     Dates: start: 20110711, end: 20121204
  2. PRADAXA [Suspect]
     Indication: ATRIAL FIBRILLATION
  3. CYMBALTA [Concomitant]
     Dosage: 20 MG
  4. LOVASTATIN [Concomitant]
     Dosage: 40 MG
  5. GLUCOPHAGE [Concomitant]
     Dosage: 1000 MG
  6. COLACE [Concomitant]
     Dosage: 200 MG
  7. LASIX [Concomitant]
     Dosage: 20 MG
  8. LANTUS [Concomitant]
     Dosage: 70 U
  9. SYNTHROID [Concomitant]
     Dosage: 75 MCG
  10. VITAMIN B12 [Concomitant]
     Dosage: 1000 MCG
  11. BABY ASPIRIN [Concomitant]
  12. METOPROLOL [Concomitant]
     Dosage: 100 MG
  13. TYLENOL [Concomitant]
  14. DILTIAZEM CD [Concomitant]
     Dosage: 180 MG
  15. BENAZEPRIL [Concomitant]
     Dosage: 20 MG
  16. VITAMIN D3 [Concomitant]
     Dosage: 2000 U

REACTIONS (2)
  - Lower gastrointestinal haemorrhage [Unknown]
  - Anaemia [Unknown]
